FAERS Safety Report 12312246 (Version 2)
Quarter: 2016Q2

REPORT INFORMATION
  Report Type: Report from Study
  Country: PL (occurrence: PL)
  Receive Date: 20160428
  Receipt Date: 20160504
  Transmission Date: 20160815
  Serious: Yes (Hospitalization)
  Sender: FDA-Public Use
  Company Number: PL-AMGEN-POLCT2016052552

PATIENT
  Age: 63 Year
  Sex: Female
  Weight: 58 kg

DRUGS (9)
  1. CALCIUM [Concomitant]
     Active Substance: CALCIUM
     Dosage: 500 MG, UNK
     Route: 048
     Dates: start: 20130311
  2. VITAMIN D [Concomitant]
     Active Substance: CHOLECALCIFEROL
     Dosage: 800 IU, UNK
     Route: 048
     Dates: start: 20130311
  3. MILGAMMA [Concomitant]
     Active Substance: VITAMIN B
     Dosage: 100 MG, UNK
     Route: 030
     Dates: start: 20151014, end: 20151023
  4. TEGRETOL [Concomitant]
     Active Substance: CARBAMAZEPINE
     Dosage: 200 MG, UNK
     Route: 048
     Dates: start: 20130520
  5. AGLAN [Concomitant]
     Dosage: 15 MG, UNK
     Route: 030
     Dates: start: 20151014, end: 20151023
  6. DENOSUMAB [Suspect]
     Active Substance: DENOSUMAB
     Indication: OSTEOPOROSIS POSTMENOPAUSAL
     Dosage: 1 ML, UNK
     Route: 058
     Dates: start: 20140508
  7. CONTROLOC [Concomitant]
     Active Substance: PANTOPRAZOLE SODIUM
     Dosage: 40 MG, UNK
     Route: 048
     Dates: start: 20131003
  8. FASTUM [Concomitant]
     Active Substance: KETOPROFEN
     Dosage: 25 UNK, UNK
     Route: 061
     Dates: start: 20140213
  9. ROSWERA [Concomitant]
     Dosage: 20 MG, UNK
     Route: 048
     Dates: start: 2010

REACTIONS (1)
  - Synovial cyst [Recovered/Resolved]

NARRATIVE: CASE EVENT DATE: 20151001
